FAERS Safety Report 8717669 (Version 2)
Quarter: 2012Q4

REPORT INFORMATION
  Report Type: Report from Study
  Country: FR (occurrence: FR)
  Receive Date: 20120810
  Receipt Date: 20121008
  Transmission Date: 20130627
  Serious: Yes (Other)
  Sender: FDA-Public Use
  Company Number: FR-ACTELION-A-CH2012-69662

PATIENT
  Age: 37 Year
  Sex: Male

DRUGS (6)
  1. TRACLEER [Suspect]
     Indication: DIGITAL ULCER
     Dosage: 125 mg, bid
     Route: 048
     Dates: start: 200809, end: 20110119
  2. TRACLEER [Suspect]
     Dosage: 62.5 mg, bid
     Route: 048
     Dates: start: 20080804, end: 200809
  3. CELLCEPT [Concomitant]
  4. ILOPROST [Concomitant]
  5. TRIATEC [Concomitant]
  6. INIPOMP [Concomitant]

REACTIONS (3)
  - Skin ulcer [Unknown]
  - Disease recurrence [Unknown]
  - Drug ineffective [Unknown]
